FAERS Safety Report 17241607 (Version 2)
Quarter: 2020Q1

REPORT INFORMATION
  Report Type: Report from Study
  Country: US (occurrence: US)
  Receive Date: 20200107
  Receipt Date: 20200206
  Transmission Date: 20200409
  Serious: Yes (Life-Threatening, Hospitalization)
  Sender: FDA-Public Use
  Company Number: US-ASPEN-GLO2019US013818

PATIENT
  Age: 3 Year
  Sex: Male
  Weight: 21.6 kg

DRUGS (23)
  1. METHOTREXATE. [Suspect]
     Active Substance: METHOTREXATE
     Indication: ACUTE LYMPHOCYTIC LEUKAEMIA
     Dosage: DAY 1, 29, AND 36
     Route: 037
     Dates: start: 20190821
  2. METHOTREXATE. [Suspect]
     Active Substance: METHOTREXATE
     Dosage: 12MG ONE TIME DAILY ON DAYS 1 AND 31
     Route: 037
     Dates: start: 20191211
  3. INCB018424 [Suspect]
     Active Substance: RUXOLITINIB
     Dosage: 35MG BID DAY 1-10, 21-30 AND 41-50
     Route: 048
     Dates: start: 20191107, end: 20191206
  4. METHOTREXATE. [Suspect]
     Active Substance: METHOTREXATE
     Dosage: 12 MG, 1 DOSAGE TOTAL DAY 1 AND 36
     Route: 037
     Dates: start: 20191107, end: 20191206
  5. CYTARABINE. [Suspect]
     Active Substance: CYTARABINE
     Indication: ACUTE LYMPHOCYTIC LEUKAEMIA
     Dosage: DAYS 29-32 AND 36-39
     Route: 042
     Dates: start: 20190924
  6. VINCRISTINE [Suspect]
     Active Substance: VINCRISTINE
     Dosage: DAYS,1, 11, 21, 31 AND 41
     Route: 042
     Dates: start: 20191211
  7. METHOTREXATE. [Suspect]
     Active Substance: METHOTREXATE
     Dosage: ESCALATE BY 50MG/M2/DOSE, DAY 1, 11, 21, 31 AND 41
     Route: 042
     Dates: start: 20191107, end: 20191206
  8. METHOTREXATE. [Suspect]
     Active Substance: METHOTREXATE
     Dosage: 12 MG 1 DOSAGE TOTAL (DAY 1 AND 36)
     Route: 037
     Dates: start: 20191210
  9. LORAZEPAM. [Concomitant]
     Active Substance: LORAZEPAM
     Indication: PRODUCT USED FOR UNKNOWN INDICATION
     Dosage: UNK
     Route: 065
     Dates: start: 20191209, end: 20191209
  10. INCB018424 [Suspect]
     Active Substance: RUXOLITINIB
     Dosage: 35MG, BID (DAYS 1-10, 21-30 AND 41-50)
     Route: 048
     Dates: start: 20191220
  11. ERWINIA [Suspect]
     Active Substance: ASPARAGINASE ERWINIA CHRYSANTHEMI
     Indication: ACUTE LYMPHOCYTIC LEUKAEMIA
     Dosage: 3X PER WEEK FOR 2 WEEKS
     Route: 030
     Dates: start: 20190827
  12. METHOTREXATE. [Suspect]
     Active Substance: METHOTREXATE
     Dosage: 12 MG, ONE TIME DAILY ON DAYS 1 AND 31
     Route: 037
     Dates: start: 20191107
  13. CYCLOPHOSPHAMIDE. [Suspect]
     Active Substance: CYCLOPHOSPHAMIDE
     Indication: ACUTE LYMPHOCYTIC LEUKAEMIA
     Dosage: DAY 29
     Route: 042
     Dates: start: 20190924
  14. VINCRISTINE [Suspect]
     Active Substance: VINCRISTINE
     Indication: ACUTE LYMPHOCYTIC LEUKAEMIA
     Dosage: DAY 43 AND 50
     Route: 042
     Dates: start: 20190821
  15. INCB018424 [Suspect]
     Active Substance: RUXOLITINIB
     Dosage: 35MG, BID (DAYS 1-10, 21-30 AND 41-50)
     Route: 048
     Dates: start: 20191127, end: 20191206
  16. DEXAMETHASONE. [Suspect]
     Active Substance: DEXAMETHASONE
     Indication: ACUTE LYMPHOCYTIC LEUKAEMIA
     Dosage: DAYS 1-7 AND 15-21
     Route: 048
     Dates: start: 20190821
  17. VINCRISTINE [Suspect]
     Active Substance: VINCRISTINE
     Dosage: (DAYS 1, 11, 21, 31 AND 41
     Route: 042
     Dates: start: 20191107, end: 20191206
  18. METHOTREXATE. [Suspect]
     Active Substance: METHOTREXATE
     Dosage: ESCALATE BY 50MG/M2/DOSE-DAY 1,11,21,31 AND 41
     Route: 042
     Dates: start: 20191211
  19. TIOGUANINE [Suspect]
     Active Substance: THIOGUANINE ANHYDROUS
     Indication: ACUTE LYMPHOCYTIC LEUKAEMIA
     Dosage: DAYS 29-42
     Route: 048
     Dates: start: 20190924
  20. INCB018424 [Suspect]
     Active Substance: RUXOLITINIB
     Indication: ACUTE LYMPHOCYTIC LEUKAEMIA
     Dosage: 35 MG BID DAYS 1-14 AND 29-42
     Route: 048
     Dates: start: 20190821
  21. BACTRIM [Concomitant]
     Active Substance: SULFAMETHOXAZOLE\TRIMETHOPRIM
     Indication: PRODUCT USED FOR UNKNOWN INDICATION
     Dosage: UNK
     Route: 065
     Dates: start: 20191209
  22. CYPROHEPTADINE. [Concomitant]
     Active Substance: CYPROHEPTADINE
     Indication: PRODUCT USED FOR UNKNOWN INDICATION
     Dosage: UNK
     Route: 065
     Dates: start: 20191209
  23. ERWINIA [Suspect]
     Active Substance: ASPARAGINASE ERWINIA CHRYSANTHEMI
     Dosage: 19000 IU DAYS 2 AND 22 PER PROTOCOL, THREE TIMES PER WEEK X2 WEEKS FOR EACH DOSE
     Route: 030
     Dates: start: 20191108

REACTIONS (8)
  - Mucosal inflammation [Recovered/Resolved]
  - Dehydration [Recovered/Resolved]
  - Decreased appetite [Recovering/Resolving]
  - Hypoglycaemia [Recovered/Resolved]
  - Constipation [Unknown]
  - Abdominal pain [Recovered/Resolved]
  - Lethargy [Recovered/Resolved]
  - Vomiting [Recovered/Resolved]

NARRATIVE: CASE EVENT DATE: 20190720
